FAERS Safety Report 6717638-9 (Version None)
Quarter: 2010Q2

REPORT INFORMATION
  Report Type: 
  Country: None (occurrence: None)
  Receive Date: 20100510
  Receipt Date: 20100113
  Transmission Date: 20101027
  Serious: No
  Sender: FDA-Public Use
  Company Number: A0839209A

PATIENT

DRUGS (1)
  1. ALTABAX [Suspect]
     Indication: THERAPEUTIC PROCEDURE
     Dosage: 1APP TWICE PER DAY
     Route: 061

REACTIONS (5)
  - BLISTER [None]
  - ERYTHEMA [None]
  - FEELING HOT [None]
  - INDURATION [None]
  - INFLAMMATION [None]
